FAERS Safety Report 9170887 (Version 1)
Quarter: 2013Q1

REPORT INFORMATION
  Report Type: Spontaneous
  Country: GB (occurrence: None)
  Receive Date: 20130311
  Receipt Date: 20130311
  Transmission Date: 20140127
  Serious: Yes (Life-Threatening, Hospitalization, Other)
  Sender: FDA-Public Use
  Company Number: 2013P1002910

PATIENT
  Age: 73 Year
  Sex: Male

DRUGS (2)
  1. AMIODARONE [Suspect]
     Indication: VENTRICULAR TACHYCARDIA
     Route: 048
  2. WARFARIN [Concomitant]

REACTIONS (5)
  - Metabolic acidosis [None]
  - Toxicity to various agents [None]
  - Acute hepatic failure [None]
  - Hepatic ischaemia [None]
  - Hypotension [None]
